FAERS Safety Report 25612086 (Version 1)
Quarter: 2025Q3

REPORT INFORMATION
  Report Type: Spontaneous
  Country: US (occurrence: US)
  Receive Date: 20250728
  Receipt Date: 20250728
  Transmission Date: 20251021
  Serious: Yes (Other)
  Sender: AMGEN
  Company Number: US-AMGEN-USASP2025145102

PATIENT
  Age: 71 Year
  Sex: Female
  Weight: 67.9 kg

DRUGS (23)
  1. PREDNISONE [Suspect]
     Active Substance: PREDNISONE
     Indication: Product used for unknown indication
     Dosage: 10 MILLIGRAM, QD
     Route: 048
  2. ASPIRIN [Concomitant]
     Active Substance: ASPIRIN
  3. ATORVASTATIN [Concomitant]
     Active Substance: ATORVASTATIN
  4. BACLOFEN [Concomitant]
     Active Substance: BACLOFEN
  5. BUDESONIDE [Concomitant]
     Active Substance: BUDESONIDE
  6. CLOBETASOL [Concomitant]
     Active Substance: CLOBETASOL
  7. COMBIVENT RESPIMAT [Concomitant]
     Active Substance: ALBUTEROL SULFATE\IPRATROPIUM BROMIDE
  8. DILTIAZEM [Concomitant]
     Active Substance: DILTIAZEM
  9. DORZOLAMIDE [Concomitant]
     Active Substance: DORZOLAMIDE
  10. DUONEB [Concomitant]
     Active Substance: ALBUTEROL SULFATE\IPRATROPIUM BROMIDE
  11. LATANOPROST [Concomitant]
     Active Substance: LATANOPROST
  12. OMEPRAZOLE [Concomitant]
     Active Substance: OMEPRAZOLE
  13. OXYGEN [Concomitant]
     Active Substance: OXYGEN
  14. PREGABALIN [Concomitant]
     Active Substance: PREGABALIN
  15. DIETARY SUPPLEMENT\PROBIOTICS [Concomitant]
     Active Substance: DIETARY SUPPLEMENT\PROBIOTICS NOS
  16. SODIUM CHLORIDE [Concomitant]
     Active Substance: SODIUM CHLORIDE
  17. STIOLTO RESPIMAT [Concomitant]
     Active Substance: OLODATEROL HYDROCHLORIDE\TIOTROPIUM BROMIDE MONOHYDRATE
  18. VITAMIN B12 [Concomitant]
     Active Substance: CYANOCOBALAMIN
  19. VITAMIN D3 [Concomitant]
     Active Substance: CHOLECALCIFEROL
  20. XOPENEX HFA [Concomitant]
     Active Substance: LEVALBUTEROL TARTRATE
  21. INFLUENZA VIRUS VACCINE [Concomitant]
     Active Substance: INFLUENZA VIRUS VACCINE
  22. PNEUMOCOCCAL 13-VALENT CONJUGATE VACCINE [Concomitant]
     Active Substance: PNEUMOCOCCAL 13-VALENT CONJUGATE VACCINE
  23. PNEUMOVAX 23 [Concomitant]
     Active Substance: PNEUMOCOCCAL VACCINE, POLYVALENT 23

REACTIONS (32)
  - Skin cancer [Unknown]
  - Aortic arteriosclerosis [Unknown]
  - Major depression [Unknown]
  - Nephrolithiasis [Unknown]
  - Neuropathy peripheral [Unknown]
  - Ear infection [Unknown]
  - Fibromyalgia [Unknown]
  - Urinary tract infection [Unknown]
  - Hyperlipidaemia [Unknown]
  - Palpitations [Unknown]
  - Xerosis [Unknown]
  - Pain in extremity [Unknown]
  - Actinic keratosis [Unknown]
  - Adrenal adenoma [Unknown]
  - Haemangioma of skin [Unknown]
  - Anxiolytic therapy [Unknown]
  - Ataxia [Unknown]
  - Chronic sinusitis [Unknown]
  - Dyshidrotic eczema [Unknown]
  - Dysphonia [Unknown]
  - Irritable bowel syndrome [Unknown]
  - Lentigo [Unknown]
  - Muscle spasms [Unknown]
  - Obstructive sleep apnoea syndrome [Unknown]
  - Sleep apnoea syndrome [Unknown]
  - Onychomycosis [Unknown]
  - Ovarian failure [Unknown]
  - Agoraphobia [Unknown]
  - Pain in extremity [Unknown]
  - Seborrhoeic keratosis [Unknown]
  - Dyspnoea [Unknown]
  - Tachycardia [Unknown]

NARRATIVE: CASE EVENT DATE: 20230101
